FAERS Safety Report 9737539 (Version 2)
Quarter: 2013Q4

REPORT INFORMATION
  Report Type: Report from Study
  Country: JP (occurrence: JP)
  Receive Date: 20131207
  Receipt Date: 20131207
  Transmission Date: 20140711
  Serious: Yes (Hospitalization)
  Sender: FDA-Public Use
  Company Number: JP-AMGEN-JPNCT2013048922

PATIENT
  Age: 71 Year
  Sex: Male
  Weight: 74 kg

DRUGS (16)
  1. DENOSUMAB [Suspect]
     Indication: METASTASES TO BONE
     Dosage: 120 MG, UNK
     Route: 058
     Dates: start: 20121217, end: 20130426
  2. DENOSUMAB [Suspect]
     Dosage: 2012/12/17, 2013/1/21, 2/18, 3/29, 4/26
     Route: 058
     Dates: start: 20121217, end: 20130426
  3. ZOMETA [Concomitant]
     Dosage: UNK
     Route: 042
     Dates: start: 20100119, end: 20121109
  4. ALFAROL [Concomitant]
     Dosage: UNK
     Route: 048
     Dates: start: 20121217, end: 20130524
  5. LEUPLIN [Concomitant]
     Dosage: UNK
     Route: 065
     Dates: start: 20090119, end: 20130311
  6. BICALUTAMIDE [Concomitant]
     Dosage: UNK
     Route: 065
     Dates: start: 20090119, end: 20130315
  7. BICALUTAMIDE [Concomitant]
     Dosage: UNKNOWN
     Route: 065
     Dates: start: 20090119, end: 20130315
  8. ESTRACYT [Concomitant]
     Dosage: UNK
     Route: 065
     Dates: start: 20100316, end: 20100802
  9. ESTRACYT [Concomitant]
     Dosage: UNKNOWN
     Route: 065
     Dates: start: 20100316, end: 20100802
  10. DECADRON [Concomitant]
     Dosage: UNK
     Route: 065
     Dates: start: 20100316, end: 20130524
  11. DECADRON [Concomitant]
     Dosage: UNKNOWN
     Route: 065
     Dates: start: 20100316, end: 20130524
  12. EBRANTIL [Concomitant]
     Dosage: UNK
     Route: 048
     Dates: start: 20100119, end: 20130524
  13. HUMALOG [Concomitant]
     Dosage: 3 IU, TID
     Route: 058
     Dates: start: 20110124
  14. PLETAAL [Concomitant]
     Dosage: UNK
     Route: 048
     Dates: start: 20110203, end: 20110804
  15. PLAVIX [Concomitant]
     Dosage: UNK
     Route: 048
     Dates: start: 20110805, end: 20130524
  16. JANUVIA [Concomitant]
     Dosage: UNK
     Route: 048
     Dates: start: 20120326, end: 20130524

REACTIONS (4)
  - Malaise [Recovered/Resolved]
  - Decreased appetite [Recovered/Resolved]
  - Dizziness [Recovered/Resolved]
  - Hypocalcaemia [Recovered/Resolved]
